FAERS Safety Report 17890019 (Version 3)
Quarter: 2022Q3

REPORT INFORMATION
  Report Type: Spontaneous
  Country: US (occurrence: US)
  Receive Date: 20200612
  Receipt Date: 20220916
  Transmission Date: 20221027
  Serious: Yes (Death, Other)
  Sender: FDA-Public Use
  Company Number: US-SAARTEMIS-SAC202006090101

PATIENT
  Age: 45 Year
  Sex: Male

DRUGS (3)
  1. ZANTAC [Suspect]
     Active Substance: RANITIDINE HYDROCHLORIDE
     Indication: Dyspepsia
     Dosage: 75 MG, QD
     Dates: start: 200501
  2. ZANTAC [Suspect]
     Active Substance: RANITIDINE HYDROCHLORIDE
     Indication: Abdominal discomfort
     Dosage: 150 MG, QD
     Dates: end: 201704
  3. ZANTAC [Suspect]
     Active Substance: RANITIDINE HYDROCHLORIDE
     Indication: Gastric ulcer

REACTIONS (2)
  - Gastric cancer stage III [Fatal]
  - Disease progression [Fatal]

NARRATIVE: CASE EVENT DATE: 20151001
